FAERS Safety Report 17468111 (Version 1)
Quarter: 2020Q1

REPORT INFORMATION
  Report Type: Spontaneous
  Country: US (occurrence: US)
  Receive Date: 20200227
  Receipt Date: 20200227
  Transmission Date: 20200409
  Serious: Yes (Life-Threatening, Hospitalization)
  Sender: FDA-Public Use
  Company Number: None

PATIENT
  Age: 67 Year
  Sex: Male
  Weight: 114 kg

DRUGS (6)
  1. XARELTO [Suspect]
     Active Substance: RIVAROXABAN
     Indication: ATRIAL FIBRILLATION
     Route: 048
     Dates: start: 20200131, end: 20200209
  2. ATENOLOL 100 MG DAILY [Concomitant]
     Dates: start: 20190715
  3. METROGEL 0.75% [Concomitant]
     Dates: start: 20190715
  4. CRESTOR [Concomitant]
     Active Substance: ROSUVASTATIN CALCIUM
     Dates: start: 20190701, end: 20200215
  5. NIZORAL [Concomitant]
     Active Substance: KETOCONAZOLE
     Dates: start: 20160315
  6. OMEPRAZOLE. [Concomitant]
     Active Substance: OMEPRAZOLE
     Dates: start: 20200131, end: 20200215

REACTIONS (6)
  - Flatulence [None]
  - Decreased appetite [None]
  - Abdominal distension [None]
  - Asthenia [None]
  - Fatigue [None]
  - Hepatic steatosis [None]

NARRATIVE: CASE EVENT DATE: 20200210
